FAERS Safety Report 24188168 (Version 2)
Quarter: 2024Q3

REPORT INFORMATION
  Report Type: Spontaneous
  Country: US (occurrence: US)
  Receive Date: 20240808
  Receipt Date: 20240924
  Transmission Date: 20241017
  Serious: Yes (Other)
  Sender: BAUSCH AND LOMB
  Company Number: US-BAUSCHBL-2024BNL030773

PATIENT
  Age: 98 Year
  Sex: Female

DRUGS (1)
  1. MIEBO [Suspect]
     Active Substance: PERFLUOROHEXYLOCTANE
     Indication: Product used for unknown indication
     Dosage: 1 DROP IN EACH EYE 4 TIMES DAILY
     Route: 047

REACTIONS (4)
  - Glaucoma [Unknown]
  - Product delivery mechanism issue [Unknown]
  - Wrong dose [Unknown]
  - Product use issue [Unknown]
